FAERS Safety Report 7219679-4 (Version None)
Quarter: 2011Q1

REPORT INFORMATION
  Report Type: 
  Country: None (occurrence: None)
  Receive Date: 20110111
  Receipt Date: 20110103
  Transmission Date: 20110831
  Serious: Yes (Other)
  Sender: FDA-Public Use
  Company Number: PHHY2011DE00562

PATIENT
  Sex: Male
  Weight: 67 kg

DRUGS (2)
  1. EXJADE [Suspect]
     Indication: HAEMOSIDEROSIS
     Dosage: 1000 MG/DAY
     Route: 048
     Dates: start: 20090101, end: 20101001
  2. EXJADE [Suspect]
     Dosage: 1500 MG/DAY
     Route: 048
     Dates: start: 20090101, end: 20101001

REACTIONS (6)
  - MYOCARDIAL INFARCTION [None]
  - MUSCLE SPASMS [None]
  - BLOOD MAGNESIUM DECREASED [None]
  - SERUM FERRITIN INCREASED [None]
  - IRON OVERLOAD [None]
  - VISUAL ACUITY REDUCED [None]
